FAERS Safety Report 12313398 (Version 1)
Quarter: 2016Q2

REPORT INFORMATION
  Report Type: Spontaneous
  Country: None (occurrence: None)
  Receive Date: 20160427
  Receipt Date: 20160427
  Transmission Date: 20160815
  Serious: No
  Sender: FDA-Public Use
  Company Number: None

PATIENT
  Sex: Female
  Weight: 81.65 kg

DRUGS (2)
  1. ALPRAZOLAM. [Suspect]
     Active Substance: ALPRAZOLAM
     Indication: BLOOD PRESSURE MEASUREMENT
     Dosage: MOUTH AS NEEDED OR ONCE/DAY
     Route: 048
     Dates: start: 200007
  2. ALPRAZOLAM. [Suspect]
     Active Substance: ALPRAZOLAM
     Indication: PALPITATIONS
     Dosage: MOUTH AS NEEDED OR ONCE/DAY
     Route: 048
     Dates: start: 200007

REACTIONS (3)
  - Product taste abnormal [None]
  - Product physical issue [None]
  - Product solubility abnormal [None]
